FAERS Safety Report 5611818-1 (Version None)
Quarter: 2008Q1

REPORT INFORMATION
  Report Type: 
  Country: None (occurrence: None)
  Receive Date: 20080204
  Receipt Date: 20080129
  Transmission Date: 20080703
  Serious: Yes (Hospitalization)
  Sender: FDA-Public Use
  Company Number: GB-BAYER-200810210BNE

PATIENT
  Sex: Male

DRUGS (1)
  1. ADALAT [Suspect]
     Indication: HYPERTENSION
     Route: 048
     Dates: start: 19970506, end: 20070924

REACTIONS (3)
  - DISSOCIATION [None]
  - FEELING ABNORMAL [None]
  - IMPAIRED DRIVING ABILITY [None]
